FAERS Safety Report 15709720 (Version 1)
Quarter: 2018Q4

REPORT INFORMATION
  Report Type: Spontaneous
  Country: PL (occurrence: PL)
  Receive Date: 20181211
  Receipt Date: 20181211
  Transmission Date: 20190205
  Serious: Yes (Other)
  Sender: FDA-Public Use
  Company Number: PL-TEVA-2018-PL-986453

PATIENT
  Age: 41 Year
  Sex: Female

DRUGS (1)
  1. LESIPLUS [Suspect]
     Active Substance: DROSPIRENONE\ETHINYL ESTRADIOL
     Indication: CONTRACEPTION
     Route: 065
     Dates: start: 2016, end: 20171029

REACTIONS (1)
  - Breast cancer female [Recovered/Resolved]

NARRATIVE: CASE EVENT DATE: 20171029
